FAERS Safety Report 20060089 (Version 3)
Quarter: 2021Q4

REPORT INFORMATION
  Report Type: Spontaneous
  Country: ES (occurrence: ES)
  Receive Date: 20211111
  Receipt Date: 20211202
  Transmission Date: 20220303
  Serious: Yes (Death, Hospitalization, Other)
  Sender: FDA-Public Use
  Company Number: ES-CELLTRION INC.-2021ES015054

PATIENT

DRUGS (1)
  1. RITUXIMAB [Suspect]
     Active Substance: RITUXIMAB
     Indication: Acquired haemophilia
     Dosage: UNK
     Route: 065

REACTIONS (6)
  - Shock [Fatal]
  - Respiratory failure [Fatal]
  - Pneumonia necrotising [Fatal]
  - Thrombosis [Unknown]
  - Liver abscess [Unknown]
  - Off label use [Unknown]
